FAERS Safety Report 4655549-3 (Version None)
Quarter: 2005Q2

REPORT INFORMATION
  Report Type: 
  Country: None (occurrence: None)
  Receive Date: 20050505
  Receipt Date: 20050422
  Transmission Date: 20051028
  Serious: Yes (Hospitalization, Other)
  Sender: FDA-Public Use
  Company Number: 2005063643

PATIENT
  Age: 54 Year
  Sex: Female
  Weight: 84.369 kg

DRUGS (7)
  1. GEODON [Suspect]
     Indication: BIPOLAR DISORDER
     Dosage: 160 MG (80 MG 2 IN 1 D) ORAL
     Route: 048
  2. METFORMIN HCL [Concomitant]
  3. VENLAFAXINE HCL [Concomitant]
  4. VALPROATE SODIUM [Concomitant]
  5. FENOFIBRATE [Concomitant]
  6. PRAVASTATIN SODIUM [Concomitant]
  7. OMEPRAZOLE [Concomitant]

REACTIONS (7)
  - BLOOD GLUCOSE INCREASED [None]
  - DECREASED APPETITE [None]
  - GLYCOSYLATED HAEMOGLOBIN INCREASED [None]
  - NASOPHARYNGITIS [None]
  - OEDEMA PERIPHERAL [None]
  - THROMBOSIS [None]
  - WEIGHT DECREASED [None]
